FAERS Safety Report 13065452 (Version 1)
Quarter: 2016Q4

REPORT INFORMATION
  Report Type: Report from Study
  Country: SE (occurrence: SE)
  Receive Date: 20161227
  Receipt Date: 20161227
  Transmission Date: 20170207
  Serious: Yes (Death)
  Sender: FDA-Public Use
  Company Number: SE-PFIZER INC-2016591616

PATIENT

DRUGS (5)
  1. CETUXIMAB [Suspect]
     Active Substance: CETUXIMAB
     Dosage: 250 MG/M2, WEEKLY
  2. OXALIPLATIN. [Suspect]
     Active Substance: OXALIPLATIN
     Dosage: 130 MG/M2, CYCLIC (21-DAY CYCLES, D1 (CYCLE 1: 130MG/M2, CYCLE 2-3: 85 MG/M2))
  3. OXALIPLATIN. [Suspect]
     Active Substance: OXALIPLATIN
     Indication: OESOPHAGEAL CARCINOMA
     Dosage: 130 MG/M2, CYCLIC (21-DAY CYCLES, D1 (CYCLE 1: 130MG/M2, CYCLE 2-3: 85 MG/M2))
  4. FLUOROURACIL. [Suspect]
     Active Substance: FLUOROURACIL
     Indication: OESOPHAGEAL CARCINOMA
     Dosage: 750 MG/M2, CYCLIC (21-DAY CYCLES, D1-5)
  5. CETUXIMAB [Suspect]
     Active Substance: CETUXIMAB
     Indication: OESOPHAGEAL CARCINOMA
     Dosage: 400 MG/M2, WEEKLY (LOADING DOSE)

REACTIONS (1)
  - Gastrointestinal necrosis [Fatal]
